FAERS Safety Report 15362477 (Version 1)
Quarter: 2018Q3

REPORT INFORMATION
  Report Type: Spontaneous
  Country: AU (occurrence: AU)
  Receive Date: 20180907
  Receipt Date: 20180907
  Transmission Date: 20181010
  Serious: Yes (Life-Threatening)
  Sender: FDA-Public Use
  Company Number: AU-009507513-1808AUS013180

PATIENT
  Age: 19 Year
  Sex: Male
  Weight: 65 kg

DRUGS (11)
  1. BRIDION [Suspect]
     Active Substance: SUGAMMADEX
     Dosage: 200 MG, UNK
     Route: 042
     Dates: start: 20171110, end: 20171110
  2. ASPIRIN. [Concomitant]
     Active Substance: ASPIRIN
     Dosage: 500 MG, UNK
     Route: 042
     Dates: start: 20171110
  3. CEFAZOLIN [Concomitant]
     Active Substance: CEFAZOLIN
     Dosage: 2 G, UNK
     Dates: start: 20171110
  4. HEPARIN [Concomitant]
     Active Substance: HEPARIN SODIUM
     Dosage: 5000 UNITS
     Dates: start: 20171110
  5. METARAMINOL [Concomitant]
     Active Substance: METARAMINOL
     Indication: PREMEDICATION
     Dosage: UNK
     Dates: start: 20171110
  6. CLOPIDOGREL [Concomitant]
     Active Substance: CLOPIDOGREL BISULFATE
     Dosage: UNK
     Dates: start: 20171110
  7. FENTANYL. [Concomitant]
     Active Substance: FENTANYL
     Dosage: 50 MICROGRAM, UNK
     Dates: start: 20171110
  8. REMIFENTANIL HYDROCHLORIDE. [Concomitant]
     Active Substance: REMIFENTANIL HYDROCHLORIDE
     Dosage: UNK
     Route: 042
     Dates: start: 20171110
  9. ONDANSETRON [Concomitant]
     Active Substance: ONDANSETRON
     Dosage: 8 MG, UNK
     Dates: start: 20171110
  10. PROPOFOL. [Concomitant]
     Active Substance: PROPOFOL
     Dosage: UNK
     Route: 042
     Dates: start: 20171110
  11. ROCURONIUM BROMIDE. [Concomitant]
     Active Substance: ROCURONIUM BROMIDE
     Indication: NEUROMUSCULAR BLOCKING THERAPY
     Dosage: UNK
     Dates: start: 20171110

REACTIONS (4)
  - Bronchospasm [Recovered/Resolved]
  - Hypotension [Recovered/Resolved]
  - Wheezing [Recovered/Resolved]
  - Airway peak pressure increased [Recovered/Resolved]

NARRATIVE: CASE EVENT DATE: 20171110
